FAERS Safety Report 19261388 (Version 2)
Quarter: 2021Q2

REPORT INFORMATION
  Report Type: Spontaneous
  Country: NL (occurrence: NL)
  Receive Date: 20210515
  Receipt Date: 20210527
  Transmission Date: 20210717
  Serious: Yes (Other)
  Sender: FDA-Public Use
  Company Number: NVSC2021NL100612

PATIENT
  Age: 63 Year
  Sex: Male

DRUGS (4)
  1. LEUPRORELIN [Suspect]
     Active Substance: LEUPROLIDE ACETATE
     Dosage: 22.5 MG, Q3MO (22.5 MG, EVERY 3 MONTHS)
     Route: 058
     Dates: start: 20201102
  2. LEUPRORELIN [Suspect]
     Active Substance: LEUPROLIDE ACETATE
     Dosage: 22.5 MG, Q3MO (22.5 MG, EVERY 3 MONTHS)
     Route: 058
     Dates: start: 20210201
  3. LEUPRORELIN [Suspect]
     Active Substance: LEUPROLIDE ACETATE
     Indication: PROSTATE CANCER
     Dosage: 22.5 MG, Q3MO (22.5 MG, EVERY 3 MONTHS)
     Route: 058
     Dates: start: 20180523
  4. LEUPRORELIN [Suspect]
     Active Substance: LEUPROLIDE ACETATE
     Dosage: 22.5 MG, Q3MO 22.5 MG, EVERY 3 MONTHS
     Route: 058
     Dates: start: 20200803

REACTIONS (1)
  - Terminal state [Unknown]
